FAERS Safety Report 9377812 (Version 1)
Quarter: 2013Q3

REPORT INFORMATION
  Report Type: Spontaneous
  Country: IE (occurrence: IE)
  Receive Date: 20130701
  Receipt Date: 20130701
  Transmission Date: 20140515
  Serious: Yes (Death, Hospitalization)
  Sender: FDA-Public Use
  Company Number: PHHY2013IE066793

PATIENT
  Age: 52 Year
  Sex: Female

DRUGS (4)
  1. HYDROXYCHLOROQUINE [Suspect]
     Dosage: 400 MG, UNK
     Dates: start: 1995
  2. WARFARIN [Concomitant]
  3. PREDNISOLONE [Concomitant]
     Dosage: 5-10 MG
  4. BISOPROLOL [Concomitant]
     Dosage: 5 MG, QD

REACTIONS (14)
  - Ventricular arrhythmia [Fatal]
  - Cardiomyopathy [Unknown]
  - Dyspnoea paroxysmal nocturnal [Unknown]
  - Orthopnoea [Unknown]
  - Dyspnoea [Unknown]
  - Fatigue [Unknown]
  - Chest pain [Unknown]
  - Myopathy [Unknown]
  - Bundle branch block left [Unknown]
  - Ventricular hypertrophy [Unknown]
  - Left ventricular dysfunction [Unknown]
  - Diastolic dysfunction [Unknown]
  - Right ventricular failure [Unknown]
  - Myocardial fibrosis [Unknown]
